FAERS Safety Report 16811597 (Version 1)
Quarter: 2019Q3

REPORT INFORMATION
  Report Type: Spontaneous
  Country: LT (occurrence: LT)
  Receive Date: 20190916
  Receipt Date: 20190916
  Transmission Date: 20191005
  Serious: Yes (Life-Threatening, Hospitalization)
  Sender: FDA-Public Use
  Company Number: LT-ELI_LILLY_AND_COMPANY-LT201909006753

PATIENT

DRUGS (1)
  1. ERBITUX [Suspect]
     Active Substance: CETUXIMAB
     Indication: LIP AND/OR ORAL CAVITY CANCER
     Dosage: 100 MG, UNK
     Route: 065
     Dates: start: 2019, end: 2019

REACTIONS (2)
  - Loss of consciousness [Unknown]
  - Asphyxia [Unknown]

NARRATIVE: CASE EVENT DATE: 2019
